FAERS Safety Report 15712848 (Version 1)
Quarter: 2018Q4

REPORT INFORMATION
  Report Type: Spontaneous
  Country: US (occurrence: US)
  Receive Date: 20181129
  Receipt Date: 20181129
  Transmission Date: 20190205
  Serious: No
  Sender: FDA-Public Use
  Company Number: None

PATIENT
  Age: 77 Year
  Sex: Male
  Weight: 88.45 kg

DRUGS (4)
  1. WARTSTICK [Suspect]
     Active Substance: SALICYLIC ACID
     Indication: SKIN PAPILLOMA
     Route: 061
     Dates: start: 20181112
  2. BLOOD PRESSURE MEDS [Concomitant]
  3. FISH OIL [Concomitant]
     Active Substance: FISH OIL
  4. MULTI VITAMINS [Concomitant]
     Active Substance: VITAMINS

REACTIONS (3)
  - Product complaint [None]
  - Circumstance or information capable of leading to device use error [None]
  - Product appearance confusion [None]

NARRATIVE: CASE EVENT DATE: 20181118
